FAERS Safety Report 18696658 (Version 1)
Quarter: 2021Q1

REPORT INFORMATION
  Report Type: Spontaneous
  Country: US (occurrence: US)
  Receive Date: 20210104
  Receipt Date: 20210104
  Transmission Date: 20210419
  Serious: Yes (Death, Life-Threatening, Hospitalization)
  Sender: FDA-Public Use
  Company Number: US-ROCHE-2645564

PATIENT
  Age: 53 Year
  Sex: Female
  Weight: 69.6 kg

DRUGS (2)
  1. ACTIVASE [Suspect]
     Active Substance: ALTEPLASE
     Indication: ISCHAEMIC STROKE
     Route: 040
     Dates: start: 20200715, end: 20200715
  2. ACTIVASE [Suspect]
     Active Substance: ALTEPLASE
     Route: 040
     Dates: start: 20200715, end: 20200715

REACTIONS (3)
  - Haemorrhage [Unknown]
  - Incorrect drug administration rate [Unknown]
  - Cerebral haemorrhage [Fatal]

NARRATIVE: CASE EVENT DATE: 20200715
